FAERS Safety Report 12615305 (Version 1)
Quarter: 2016Q3

REPORT INFORMATION
  Report Type: Spontaneous
  Country: US (occurrence: US)
  Receive Date: 20160802
  Receipt Date: 20160802
  Transmission Date: 20161109
  Serious: No
  Sender: FDA-Public Use
  Company Number: US-BAYER-2016-148777

PATIENT
  Age: 73 Year
  Sex: Female
  Weight: 74.83 kg

DRUGS (2)
  1. ALEVE PM [Suspect]
     Active Substance: DIPHENHYDRAMINE HYDROCHLORIDE\NAPROXEN SODIUM
     Indication: ANALGESIC THERAPY
     Dosage: 2 CAPLETS, QD
     Route: 048
     Dates: end: 201607
  2. ALEVE [Suspect]
     Active Substance: NAPROXEN SODIUM
     Indication: ANALGESIC THERAPY
     Dosage: 2 TABLETS, QD
     Route: 048
     Dates: start: 2016, end: 201607

REACTIONS (2)
  - Rash pruritic [Not Recovered/Not Resolved]
  - Incorrect drug administration duration [None]

NARRATIVE: CASE EVENT DATE: 2016
